FAERS Safety Report 10368648 (Version 1)
Quarter: 2014Q3

REPORT INFORMATION
  Report Type: Report from Study
  Country: JP (occurrence: JP)
  Receive Date: 20140807
  Receipt Date: 20140807
  Transmission Date: 20150326
  Serious: Yes (Other)
  Sender: FDA-Public Use
  Company Number: PHHY2013JP159777

PATIENT
  Age: 81 Year
  Sex: Female

DRUGS (2)
  1. EXELON PATCH [Suspect]
     Active Substance: RIVASTIGMINE
     Indication: DEMENTIA ALZHEIMER^S TYPE
     Dosage: 9 MG, DAILY
     Route: 062
  2. EXELON PATCH [Suspect]
     Active Substance: RIVASTIGMINE
     Dosage: 4.5 MG, UNK
     Route: 062

REACTIONS (1)
  - Cognitive disorder [Unknown]
